FAERS Safety Report 5904373-X (Version None)
Quarter: 2008Q4

REPORT INFORMATION
  Report Type: 
  Country: None (occurrence: None)
  Receive Date: 20081001
  Receipt Date: 20080924
  Transmission Date: 20090506
  Serious: Yes (Other)
  Sender: FDA-Public Use
  Company Number: PHHY2008CA15514

PATIENT
  Sex: Female

DRUGS (1)
  1. CLOZARIL [Suspect]
     Dosage: 75 MG, ONCE/SINGLE
     Route: 048
     Dates: start: 20080702, end: 20080723

REACTIONS (5)
  - DELIRIUM [None]
  - FAECAL INCONTINENCE [None]
  - FALL [None]
  - SOMNOLENCE [None]
  - URINARY INCONTINENCE [None]
